FAERS Safety Report 22311860 (Version 1)
Quarter: 2023Q2

REPORT INFORMATION
  Report Type: Spontaneous
  Country: US (occurrence: US)
  Receive Date: 20230512
  Receipt Date: 20230512
  Transmission Date: 20230721
  Serious: No
  Sender: FDA-Public Use
  Company Number: US-ABBVIE-4760915

PATIENT
  Sex: Male

DRUGS (1)
  1. IMBRUVICA [Suspect]
     Active Substance: IBRUTINIB
     Indication: Product used for unknown indication
     Dosage: FORM STRENGTH 420 MG
     Route: 048

REACTIONS (3)
  - Dermatitis allergic [Recovered/Resolved]
  - Skin exfoliation [Recovered/Resolved]
  - COVID-19 [Recovered/Resolved]
